FAERS Safety Report 19050220 (Version 1)
Quarter: 2021Q1

REPORT INFORMATION
  Report Type: Spontaneous
  Country: US (occurrence: US)
  Receive Date: 20210323
  Receipt Date: 20210323
  Transmission Date: 20210420
  Serious: Yes (Hospitalization)
  Sender: FDA-Public Use
  Company Number: None

PATIENT
  Age: 73 Year
  Sex: Female
  Weight: 80.7 kg

DRUGS (1)
  1. BAMLANIVIMAB. [Suspect]
     Active Substance: BAMLANIVIMAB
     Indication: CORONAVIRUS INFECTION
     Dates: start: 20210318, end: 20210318

REACTIONS (4)
  - Fibrin D dimer increased [None]
  - Inflammatory marker increased [None]
  - Laboratory test abnormal [None]
  - Hypoxia [None]

NARRATIVE: CASE EVENT DATE: 20210318
